FAERS Safety Report 5475419-0 (Version None)
Quarter: 2007Q4

REPORT INFORMATION
  Report Type: 
  Country: None (occurrence: None)
  Receive Date: 20071003
  Receipt Date: 20070926
  Transmission Date: 20080405
  Serious: No
  Sender: FDA-Public Use
  Company Number: PHBS2007NO15662

PATIENT
  Sex: Male

DRUGS (2)
  1. ZOMETA [Suspect]
     Indication: METASTASES TO BONE
     Dosage: 17 INJECTIONS
  2. CYTOSTATIC TREATMENT [Concomitant]

REACTIONS (2)
  - GINGIVITIS [None]
  - TOOTH EXTRACTION [None]
